FAERS Safety Report 15497621 (Version 2)
Quarter: 2019Q3

REPORT INFORMATION
  Report Type: Other
  Country: FR (occurrence: FR)
  Receive Date: 20181015
  Receipt Date: 20190806
  Transmission Date: 20191004
  Serious: Yes (Hospitalization, Disabling)
  Sender: FDA-Public Use
  Company Number: FR-INCYTE CORPORATION-2018IN010406

PATIENT

DRUGS (2)
  1. HYDREA [Suspect]
     Active Substance: HYDROXYUREA
     Indication: POLYCYTHAEMIA VERA
     Dosage: 2 DF, QD
     Route: 048
     Dates: start: 201611
  2. JAKAVI [Suspect]
     Active Substance: RUXOLITINIB
     Indication: POLYCYTHAEMIA VERA
     Dosage: 45 MG, QD
     Route: 048
     Dates: start: 201609

REACTIONS (1)
  - Aeromonas infection [Recovering/Resolving]

NARRATIVE: CASE EVENT DATE: 20180807
